FAERS Safety Report 17592955 (Version 1)
Quarter: 2020Q1

REPORT INFORMATION
  Report Type: Spontaneous
  Country: US (occurrence: US)
  Receive Date: 20200327
  Receipt Date: 20200327
  Transmission Date: 20200409
  Serious: No
  Sender: FDA-Public Use
  Company Number: US-GW PHARMA-202003USGW01109

PATIENT

DRUGS (1)
  1. EPIDIOLEX [Suspect]
     Active Substance: CANNABIDIOL
     Indication: LENNOX-GASTAUT SYNDROME
     Dosage: 8.70 MG/KG/DAY, 300 MILLIGRAM, BID
     Route: 048
     Dates: start: 20191220

REACTIONS (2)
  - Weight increased [Unknown]
  - Decreased activity [Unknown]
